FAERS Safety Report 16881924 (Version 3)
Quarter: 2020Q1

REPORT INFORMATION
  Report Type: Spontaneous
  Country: PT (occurrence: PT)
  Receive Date: 20191003
  Receipt Date: 20200108
  Transmission Date: 20200409
  Serious: Yes (Hospitalization)
  Sender: FDA-Public Use
  Company Number: PT-PFM-2019-11778

PATIENT

DRUGS (3)
  1. NAVELBINE [Suspect]
     Active Substance: VINORELBINE TARTRATE
     Dosage: 40MG D1 AND D8 EACH 21 DAYS
     Route: 048
     Dates: start: 20190812, end: 20190812
  2. HERCEPTIN [Concomitant]
     Active Substance: TRASTUZUMAB
     Indication: PRODUCT USED FOR UNKNOWN INDICATION
     Dosage: UNKNOWN
     Route: 042
     Dates: start: 20150728
  3. NAVELBINE [Suspect]
     Active Substance: VINORELBINE TARTRATE
     Indication: BREAST CANCER STAGE IV
     Dosage: 40MG D1 E D8 A CADA 21 DIAS
     Route: 048
     Dates: start: 20190812, end: 20190812

REACTIONS (4)
  - Weight decreased [Recovered/Resolved]
  - Enteritis necroticans [Recovered/Resolved]
  - Feeding disorder [Recovered/Resolved]
  - Oesophagitis haemorrhagic [Recovered/Resolved]

NARRATIVE: CASE EVENT DATE: 20190817
